FAERS Safety Report 9687080 (Version 1)
Quarter: 2013Q4

REPORT INFORMATION
  Report Type: Spontaneous
  Country: CA (occurrence: CA)
  Receive Date: 20131113
  Receipt Date: 20131113
  Transmission Date: 20140711
  Serious: Yes (Death)
  Sender: FDA-Public Use
  Company Number: CA-B.I. PHARMACEUTICALS,INC./RIDGEFIELD-2013-BI-37257CN

PATIENT
  Sex: Male

DRUGS (1)
  1. PRADAX [Suspect]

REACTIONS (1)
  - Gastrointestinal haemorrhage [Fatal]
